FAERS Safety Report 7818705-9 (Version None)
Quarter: 2011Q4

REPORT INFORMATION
  Report Type: 
  Country: None (occurrence: None)
  Receive Date: 20111018
  Receipt Date: 20111007
  Transmission Date: 20120403
  Serious: No
  Sender: FDA-Public Use
  Company Number: US-BIOGENIDEC-2010BI020703

PATIENT
  Age: 45 Year
  Sex: Female

DRUGS (2)
  1. AMPYRA [Concomitant]
     Indication: PROPHYLAXIS
     Dates: start: 20100801
  2. TYSABRI [Suspect]
     Indication: MULTIPLE SCLEROSIS
     Route: 042
     Dates: start: 20100505

REACTIONS (11)
  - CONTUSION [None]
  - FUNGAL INFECTION [None]
  - MICTURITION URGENCY [None]
  - ASTHENIA [None]
  - HYPOAESTHESIA [None]
  - FALL [None]
  - GAIT DISTURBANCE [None]
  - NASOPHARYNGITIS [None]
  - CYSTITIS [None]
  - MUSCULAR WEAKNESS [None]
  - MOBILITY DECREASED [None]
